FAERS Safety Report 9053400 (Version 1)
Quarter: 2013Q1

REPORT INFORMATION
  Report Type: Spontaneous
  Country: DK (occurrence: None)
  Receive Date: 20130109
  Receipt Date: 20130109
  Transmission Date: 20140127
  Serious: Yes (Hospitalization)
  Sender: FDA-Public Use
  Company Number: 2013MA000117

PATIENT
  Age: 78 Year
  Sex: Male

DRUGS (10)
  1. METFORMIN HYDROCHLORIDE EXTENDED-RELEASE TABLETS, 500 MG (PUREPAC) (METFORMIN HYDROCHLORIDE) [Suspect]
     Indication: TYPE 2 DIABETES MELLITUS
     Route: 048
     Dates: start: 20040101, end: 20121210
  2. GLICLAZIDE (GLICLAZIDE) [Suspect]
     Indication: TYPE 2 DIABETES MELLITUS
     Route: 048
     Dates: start: 20090101, end: 20121210
  3. ADESITRIN [Concomitant]
  4. TILDIEM [Concomitant]
  5. VASCOMAN [Concomitant]
  6. NEBIVOLOL [Concomitant]
  7. LANSOPRAZOLE [Concomitant]
  8. TICLOPIDINE [Concomitant]
  9. DOXAZOSIN [Concomitant]
  10. ASPIRINA [Concomitant]

REACTIONS (1)
  - Hypoglycaemia [None]
